FAERS Safety Report 5750417-8 (Version None)
Quarter: 2008Q2

REPORT INFORMATION
  Report Type: 
  Country: None (occurrence: None)
  Receive Date: 20080528
  Receipt Date: 20080518
  Transmission Date: 20081010
  Serious: Yes (Death, Other)
  Sender: FDA-Public Use
  Company Number: IL-NOVOPROD-273990

PATIENT
  Sex: Female
  Weight: 60 kg

DRUGS (6)
  1. NOVOSEVEN [Suspect]
     Indication: HAEMORRHAGE
     Dosage: 4.8 MG, QD
     Route: 042
     Dates: start: 20080407, end: 20080407
  2. FRESH FROZEN PLASMA [Concomitant]
     Dosage: 12 UNITS
  3. FRESH FROZEN PLASMA [Concomitant]
     Dosage: 7 IU, UNK
  4. PLATELETS [Concomitant]
     Dosage: 12 UNITS
  5. RED BLOOD CELLS [Concomitant]
     Dosage: 16 UNITS
  6. RED BLOOD CELLS [Concomitant]
     Dosage: 17 UNITS

REACTIONS (4)
  - ACIDOSIS [None]
  - DISSEMINATED INTRAVASCULAR COAGULATION [None]
  - SPLENIC ARTERY ANEURYSM [None]
  - THROMBOSIS [None]
